FAERS Safety Report 6618034-5 (Version None)
Quarter: 2010Q1

REPORT INFORMATION
  Report Type: 
  Country: None (occurrence: None)
  Receive Date: 20100308
  Receipt Date: 20100302
  Transmission Date: 20100710
  Serious: Yes (Death)
  Sender: FDA-Public Use
  Company Number: FR-BRISTOL-MYERS SQUIBB COMPANY-14998264

PATIENT
  Age: 49 Year
  Sex: Female

DRUGS (5)
  1. ABILIFY [Suspect]
     Indication: BORDERLINE PERSONALITY DISORDER
     Route: 048
  2. ABILIFY [Suspect]
     Indication: DEPRESSION
     Route: 048
  3. DONORMYL [Suspect]
  4. SEROPLEX [Suspect]
  5. EQUANIL [Suspect]

REACTIONS (1)
  - DEATH [None]
